FAERS Safety Report 16864277 (Version 1)
Quarter: 2019Q3

REPORT INFORMATION
  Report Type: Spontaneous
  Country: US (occurrence: US)
  Receive Date: 20190927
  Receipt Date: 20190927
  Transmission Date: 20191005
  Serious: No
  Sender: FDA-Public Use
  Company Number: PHEH2019US039983

PATIENT
  Sex: Male

DRUGS (2)
  1. TAFINLAR [Suspect]
     Active Substance: DABRAFENIB MESYLATE
     Indication: METASTASIS
     Dosage: 150 MG, Q12H
     Route: 048
     Dates: start: 20190730, end: 20190924
  2. MEKINIST [Suspect]
     Active Substance: TRAMETINIB DIMETHYL SULFOXIDE
     Indication: METASTASIS
     Dosage: 2 MG, QD
     Route: 048
     Dates: start: 20190730, end: 20190924

REACTIONS (3)
  - Fatigue [Unknown]
  - Dehydration [Unknown]
  - Drug intolerance [Unknown]
